FAERS Safety Report 5131400-2 (Version None)
Quarter: 2006Q4

REPORT INFORMATION
  Report Type: 
  Country: None (occurrence: None)
  Receive Date: 20061020
  Receipt Date: 20061011
  Transmission Date: 20070319
  Serious: Yes (Death)
  Sender: FDA-Public Use
  Company Number: US-GLAXOSMITHKLINE-A0624109A

PATIENT
  Age: 38 Year
  Sex: Male
  Weight: 81.4 kg

DRUGS (8)
  1. ADVAIR HFA [Suspect]
     Route: 055
     Dates: start: 20020517
  2. SPIRIVA [Concomitant]
     Route: 055
  3. AVAPRO [Concomitant]
     Indication: HYPERTENSION
  4. SEROQUEL [Concomitant]
     Indication: BIPOLAR DISORDER
  5. LITHIUM CARBONATE [Concomitant]
     Indication: BIPOLAR DISORDER
  6. PROPRANOLOL [Concomitant]
     Indication: BIPOLAR DISORDER
  7. KLONOPIN [Concomitant]
     Indication: BIPOLAR DISORDER
  8. BENTYL [Concomitant]
     Indication: IRRITABLE BOWEL SYNDROME

REACTIONS (3)
  - ASTHMA [None]
  - RESPIRATORY ARREST [None]
  - STATUS ASTHMATICUS [None]
